FAERS Safety Report 7048971-1 (Version None)
Quarter: 2010Q4

REPORT INFORMATION
  Report Type: 
  Country: None (occurrence: None)
  Receive Date: 20101018
  Receipt Date: 20101013
  Transmission Date: 20110411
  Serious: Yes (Death, Life-Threatening, Disabling)
  Sender: FDA-Public Use
  Company Number: JP-JNJFOC-20091005392

PATIENT
  Sex: Female
  Weight: 56 kg

DRUGS (28)
  1. DOXORUBICIN HCL [Suspect]
     Indication: OVARIAN CANCER RECURRENT
     Dosage: CYCLE 2
     Route: 042
  2. DOXORUBICIN HCL [Suspect]
     Dosage: CYCLE 1
     Route: 042
  3. DOXORUBICIN HCL [Suspect]
     Dosage: CYCLE 2
     Route: 042
  4. MAGMITT [Concomitant]
     Indication: GASTRITIS
     Route: 048
  5. LOXONIN [Concomitant]
     Indication: STOMATITIS
     Route: 048
  6. AZULENE SULFONATE SODIUM [Concomitant]
     Indication: STOMATITIS
     Route: 048
  7. RAMELTEON [Concomitant]
     Indication: PROPHYLAXIS
     Route: 042
  8. RAMELTEON [Concomitant]
     Route: 042
  9. RAMELTEON [Concomitant]
     Route: 042
  10. VITAMEDIN [Concomitant]
     Indication: PROPHYLAXIS
     Route: 042
  11. VITAMEDIN [Concomitant]
     Route: 042
  12. VITAMEDIN [Concomitant]
     Route: 042
  13. DECADRON [Concomitant]
     Indication: PROPHYLAXIS
     Dosage: 1 X 8MG AND 1 X 4MG
     Route: 048
  14. DECADRON [Concomitant]
     Route: 048
  15. DECADRON [Concomitant]
     Dosage: 1 X 8MG AND 1 X 4MG
     Route: 048
  16. DECADRON [Concomitant]
     Route: 048
  17. DECADRON [Concomitant]
     Dosage: 1 X 8MG AND 1 X 4MG
     Route: 048
  18. DECADRON [Concomitant]
     Dosage: 1 X 8MG AND 1 X 4MG
     Route: 048
  19. DECADRON [Concomitant]
     Dosage: 1 X 8MG AND 1 X 4MG
     Route: 048
  20. DECADRON [Concomitant]
     Dosage: 1 X 8MG AND 1 X 4MG
     Route: 048
  21. DECADRON [Concomitant]
     Dosage: 1 X 8MG AND 1 X 4MG
     Route: 048
  22. UNASYN [Concomitant]
     Indication: PRODUCT USED FOR UNKNOWN INDICATION
     Route: 048
  23. ACIROVEC [Concomitant]
     Indication: HERPES ZOSTER
     Route: 048
  24. NAIXAN [Concomitant]
     Indication: PRODUCT USED FOR UNKNOWN INDICATION
     Route: 048
  25. SELBEX [Concomitant]
     Indication: GASTRITIS
     Route: 048
  26. GAMOFA [Concomitant]
     Indication: GASTRITIS
     Route: 048
  27. AZUNOL [Concomitant]
     Indication: STOMATITIS
     Route: 049
  28. DUROTEP MT [Concomitant]
     Indication: CANCER PAIN
     Route: 062

REACTIONS (3)
  - CANCER PAIN [None]
  - MALIGNANT ASCITES [None]
  - OVARIAN CANCER RECURRENT [None]
